FAERS Safety Report 8193194-6 (Version None)
Quarter: 2012Q1

REPORT INFORMATION
  Report Type: 
  Country: None (occurrence: None)
  Receive Date: 20120308
  Receipt Date: 20120301
  Transmission Date: 20120608
  Serious: Yes (Hospitalization)
  Sender: FDA-Public Use
  Company Number: JP-ASTELLAS-2012JP001364

PATIENT
  Sex: Male

DRUGS (5)
  1. DRUGS FOR TREATMENT OF HEART DISEASES [Concomitant]
     Indication: TACHYCARDIA
     Dosage: UNK
     Route: 048
  2. VESICARE [Suspect]
     Indication: HYPERTONIC BLADDER
     Dosage: 5 MG, UNKNOWN/D
     Route: 048
     Dates: end: 20120215
  3. VESICARE [Suspect]
     Indication: POLLAKIURIA
  4. ALPHA-1 BLOCKER [Concomitant]
     Indication: BENIGN PROSTATIC HYPERPLASIA
     Route: 048
  5. TAMSULOSIN HCL [Suspect]
     Dosage: 0.2 MG, UNKNOWN/D
     Route: 048
     Dates: end: 20120215

REACTIONS (1)
  - ATRIAL FIBRILLATION [None]
